FAERS Safety Report 7151417-6 (Version None)
Quarter: 2010Q4

REPORT INFORMATION
  Report Type: 
  Country: None (occurrence: None)
  Receive Date: 20101210
  Receipt Date: 20101202
  Transmission Date: 20110411
  Serious: Yes (Life-Threatening)
  Sender: FDA-Public Use
  Company Number: JP-MERCK-1010USA02188

PATIENT
  Age: 68 Year
  Sex: Female

DRUGS (9)
  1. JANUVIA [Suspect]
     Indication: TYPE 2 DIABETES MELLITUS
     Route: 048
     Dates: start: 20100217, end: 20100915
  2. KINEDAK [Concomitant]
     Route: 065
  3. AMARYL [Concomitant]
     Route: 065
  4. BLOPRESS [Concomitant]
     Route: 065
  5. CARVEDILOL [Concomitant]
     Route: 065
  6. ASPIRIN [Concomitant]
     Route: 065
     Dates: end: 20100901
  7. LIVALO [Concomitant]
     Route: 065
  8. AMLODIPINE BESYLATE [Concomitant]
     Route: 065
  9. ACTOS [Concomitant]
     Route: 065

REACTIONS (1)
  - PANCYTOPENIA [None]
